FAERS Safety Report 18377690 (Version 1)
Quarter: 2020Q4

REPORT INFORMATION
  Report Type: Spontaneous
  Country: FR (occurrence: FR)
  Receive Date: 20201013
  Receipt Date: 20201013
  Transmission Date: 20210114
  Serious: Yes (Hospitalization)
  Sender: FDA-Public Use
  Company Number: FR-PFIZER INC-2020392174

PATIENT
  Age: 51 Year
  Sex: Female
  Weight: 44.9 kg

DRUGS (27)
  1. DUROGESIC [Concomitant]
     Active Substance: FENTANYL
     Indication: ABDOMINAL PAIN
     Dosage: 25 UG
     Route: 003
     Dates: start: 20190921
  2. PLITICAN [Concomitant]
     Active Substance: ALIZAPRIDE HYDROCHLORIDE
     Indication: PROPHYLAXIS
     Dosage: UNK
  3. PLITICAN [Concomitant]
     Active Substance: ALIZAPRIDE HYDROCHLORIDE
     Indication: NAUSEA
     Dosage: UNK
     Dates: start: 20191024, end: 20191105
  4. VOGALENE [Concomitant]
     Active Substance: METOPIMAZINE
     Indication: VOMITING
     Dosage: UNK
  5. HYDROCHLOROTHIAZIDE. [Concomitant]
     Active Substance: HYDROCHLOROTHIAZIDE
     Dosage: UNK
     Route: 065
  6. GEMCITABINE HYDROCHLORIDE. [Suspect]
     Active Substance: GEMCITABINE HYDROCHLORIDE
     Dosage: 1000 MG/M2, (FREQ: 4 WK)
     Route: 042
     Dates: start: 20190926, end: 20191106
  7. GEMCITABINE HYDROCHLORIDE. [Suspect]
     Active Substance: GEMCITABINE HYDROCHLORIDE
     Dosage: 800 MG/M2, (FREQ: 4 WK)
     Route: 042
     Dates: start: 20191114
  8. ABRAXANE [Suspect]
     Active Substance: PACLITAXEL
     Indication: DUCTAL ADENOCARCINOMA OF PANCREAS
     Dosage: 125 MG/M2 (FREQ: 4 WK)
     Route: 042
     Dates: start: 20190926, end: 20191106
  9. SPASFON [Concomitant]
     Dosage: UNK
     Route: 042
  10. SPASFON [Concomitant]
     Indication: ABDOMINAL PAIN
     Dosage: 80 MILLIGRAM
     Route: 042
     Dates: start: 20191024, end: 20191105
  11. ESIDREX [Concomitant]
     Active Substance: HYDROCHLOROTHIAZIDE
     Indication: ASCITES
     Dosage: UNK
  12. ERYASPASE [Concomitant]
     Active Substance: ASPARAGINASE
     Dosage: 100 IU/KG, (FREQ: 2 WK)
     Dates: start: 20190926, end: 20191030
  13. SOLUPRED [Concomitant]
     Indication: PAIN
     Dosage: 40 UNK
     Dates: start: 20191031, end: 20191102
  14. ERYASPASE [Concomitant]
     Active Substance: ASPARAGINASE
     Indication: DUCTAL ADENOCARCINOMA OF PANCREAS
     Dosage: 75 IU/KG(FREQ:2 WK)
     Route: 041
     Dates: start: 20191114
  15. INEXIUM [Concomitant]
     Active Substance: ESOMEPRAZOLE
     Indication: ABDOMINAL PAIN UPPER
     Dosage: 40 MG, 1X/DAY
     Route: 042
     Dates: start: 20191024, end: 20191105
  16. DOLIPRANE [Concomitant]
     Active Substance: ACETAMINOPHEN
     Indication: ABDOMINAL PAIN
     Dosage: 1 G
     Route: 048
     Dates: start: 20190921
  17. ACTISKENAN [Concomitant]
     Active Substance: MORPHINE SULFATE
     Indication: ABDOMINAL PAIN
     Dosage: 10 MG
     Route: 048
     Dates: start: 20191029
  18. ZOPHREN [Concomitant]
     Active Substance: ONDANSETRON
     Indication: PROPHYLAXIS OF NAUSEA AND VOMITING
     Dosage: 16 MG, 1X/DAY
     Route: 048
     Dates: start: 20191030, end: 20191105
  19. INEXIUM [Concomitant]
     Active Substance: ESOMEPRAZOLE
     Dosage: 40 MG, 1X/DAY
     Dates: start: 20191004
  20. VOGALENE [Concomitant]
     Active Substance: METOPIMAZINE
     Indication: PROPHYLAXIS
     Dosage: UNK
  21. PLITICAN [Concomitant]
     Active Substance: ALIZAPRIDE HYDROCHLORIDE
     Indication: VOMITING
     Dosage: UNK
  22. SOLUPRED [Concomitant]
     Indication: NAUSEA
     Dosage: UNK
  23. VOGALENE [Concomitant]
     Active Substance: METOPIMAZINE
     Indication: NAUSEA
     Dosage: 22.5 MG, 1X/DAY
     Dates: start: 20191009
  24. BICARBONATE [Concomitant]
     Active Substance: SODIUM BICARBONATE
     Indication: PROPHYLAXIS
     Dosage: 3 UNK, 1X/DAY
     Route: 065
     Dates: start: 20190926
  25. ABRAXANE [Suspect]
     Active Substance: PACLITAXEL
     Dosage: 100 MG/M2 (FREQ: 4 WK)
     Route: 042
     Dates: start: 20191114
  26. ESIDREX [Concomitant]
     Active Substance: HYDROCHLOROTHIAZIDE
     Indication: OEDEMA
     Dosage: 50 MG, 1X/DAY
     Dates: start: 20191030, end: 20191105
  27. SOLUPRED [Concomitant]
     Indication: ASTHENIA
     Dosage: 40 MG, 1X/DAY
     Dates: start: 20190912

REACTIONS (1)
  - Hypokalaemia [Recovered/Resolved]

NARRATIVE: CASE EVENT DATE: 20191112
